FAERS Safety Report 8889887 (Version 1)
Quarter: 2012Q4

REPORT INFORMATION
  Report Type: Spontaneous
  Country: US (occurrence: None)
  Receive Date: 20121105
  Receipt Date: 20121105
  Transmission Date: 20130627
  Serious: Yes (Other)
  Sender: FDA-Public Use
  Company Number: None

PATIENT
  Age: 32 Year
  Sex: Female
  Weight: 64.41 kg

DRUGS (1)
  1. MONISTAT 3 COMBINATION PACK TRIPLE ACTION [Suspect]
     Indication: YEAST INFECTION
     Dosage: 1 applicator daily vag
     Route: 067
     Dates: start: 20121026, end: 20121026

REACTIONS (2)
  - Burning sensation [None]
  - Pruritus [None]
